FAERS Safety Report 4689656-6 (Version None)
Quarter: 2005Q2

REPORT INFORMATION
  Report Type: 
  Country: None (occurrence: None)
  Receive Date: 20050608
  Receipt Date: 20050307
  Transmission Date: 20051028
  Serious: No
  Sender: FDA-Public Use
  Company Number: 2005-BP-03658BP

PATIENT
  Age: 57 Year
  Sex: Male
  Weight: 157.9 kg

DRUGS (6)
  1. SPIRIVA [Suspect]
     Indication: CHRONIC OBSTRUCTIVE PULMONARY DISEASE
     Dosage: 18 MCG (18 MCG, QD), IH
     Route: 055
     Dates: start: 20050210, end: 20050307
  2. INSULIN [Concomitant]
  3. GLUCOPHAGE [Concomitant]
  4. BUMEX [Concomitant]
  5. AVAPRO [Concomitant]
  6. ADVAIR DISKUS 100/50 [Concomitant]

REACTIONS (1)
  - RASH PRURITIC [None]
